FAERS Safety Report 19371568 (Version 7)
Quarter: 2021Q4

REPORT INFORMATION
  Report Type: Spontaneous
  Country: US (occurrence: US)
  Receive Date: 20210604
  Receipt Date: 20211013
  Transmission Date: 20220304
  Serious: Yes (Other)
  Sender: FDA-Public Use
  Company Number: US-GLAXOSMITHKLINE-US2021AMR119912

PATIENT
  Age: 54 Year
  Sex: Female

DRUGS (5)
  1. ZEJULA [Suspect]
     Active Substance: NIRAPARIB
     Indication: Ovarian cancer
     Dosage: 200 MG, QD
     Route: 048
     Dates: end: 20210525
  2. ZEJULA [Suspect]
     Active Substance: NIRAPARIB
     Dosage: 100 MG, QD
     Dates: start: 20210702
  3. ZEJULA [Suspect]
     Active Substance: NIRAPARIB
     Dosage: 200 MG, QD
  4. ZEJULA [Suspect]
     Active Substance: NIRAPARIB
     Dosage: UNK ( 2 CAPSULES ALTERNATING WITH 1 CAPSULE)
  5. ZEJULA [Suspect]
     Active Substance: NIRAPARIB
     Dosage: 200MG, QD
     Dates: end: 20210909

REACTIONS (8)
  - Renal impairment [Unknown]
  - Platelet count decreased [Recovering/Resolving]
  - Renal disorder [Unknown]
  - Myalgia [Unknown]
  - Arthralgia [Unknown]
  - Full blood count decreased [Unknown]
  - Product dose omission issue [Unknown]
  - Inappropriate schedule of product administration [Unknown]

NARRATIVE: CASE EVENT DATE: 20210501
